FAERS Safety Report 12012717 (Version 1)
Quarter: 2016Q1

REPORT INFORMATION
  Report Type: Report from Study
  Country: BE (occurrence: BE)
  Receive Date: 20160205
  Receipt Date: 20160205
  Transmission Date: 20160526
  Serious: Yes (Death)
  Sender: FDA-Public Use
  Company Number: BE-ABBVIE-15P-013-1336113-00

PATIENT
  Age: 73 Year
  Sex: Male

DRUGS (5)
  1. DUODOPA [Suspect]
     Active Substance: CARBIDOPA\LEVODOPA
     Dosage: AM DOSE= 4ML, CONTIN DOSE= 4.1ML/H DURING 16HRS, EXTRA DOSE=3ML
     Route: 050
     Dates: start: 20150123
  2. DUODOPA [Suspect]
     Active Substance: CARBIDOPA\LEVODOPA
     Indication: PARKINSON^S DISEASE
     Dosage: MD = 6 ML, CD = 3.5 ML/H DURING 16H, ED = 2 ML
     Route: 050
     Dates: start: 20100302, end: 20100416
  3. DUODOPA [Suspect]
     Active Substance: CARBIDOPA\LEVODOPA
     Dosage: DOSE CONTINUOUSLY MONITORED AND ADAPTED
     Route: 050
     Dates: start: 20100416, end: 20110202
  4. DUODOPA [Suspect]
     Active Substance: CARBIDOPA\LEVODOPA
     Dosage: MD = 4 ML, CD = 4.3 ML/H DURING 16H, ED = 3 ML
     Route: 050
     Dates: start: 20150114, end: 20150123
  5. DUODOPA [Suspect]
     Active Substance: CARBIDOPA\LEVODOPA
     Dosage: MD = 6 ML, CD = 3.8 ML/H DURING 16H, ED = 2 ML
     Route: 050
     Dates: start: 20110202, end: 20150114

REACTIONS (5)
  - Freezing phenomenon [Recovering/Resolving]
  - Device dislocation [Recovered/Resolved]
  - Diverticulum [Unknown]
  - Dyskinesia [Unknown]
  - Lung infection [Fatal]

NARRATIVE: CASE EVENT DATE: 201411
